FAERS Safety Report 9226372 (Version 1)
Quarter: 2013Q2

REPORT INFORMATION
  Report Type: Spontaneous
  Country: JP (occurrence: JP)
  Receive Date: 20130411
  Receipt Date: 20130411
  Transmission Date: 20140414
  Serious: Yes (Death, Hospitalization, Other)
  Sender: FDA-Public Use
  Company Number: JP-WATSON-2013-05718

PATIENT
  Age: 78 Year
  Sex: Male

DRUGS (14)
  1. PREDNISOLONE (UNKNOWN) [Suspect]
     Indication: RHEUMATOID ARTHRITIS
     Dosage: 5 MG, DAILY
     Route: 048
     Dates: start: 2006
  2. PREDNISOLONE (UNKNOWN) [Suspect]
     Dosage: 30 MG, DAILY
     Route: 048
  3. TACROLIMUS (UNKNOWN) [Suspect]
     Indication: RHEUMATOID ARTHRITIS
     Dosage: UNK
     Route: 065
     Dates: start: 200811, end: 200812
  4. TACROLIMUS (UNKNOWN) [Suspect]
     Indication: VASCULITIS
  5. CYCLOPHOSPHAMIDE (UNKNOWN) [Suspect]
     Indication: RHEUMATOID ARTHRITIS
     Dosage: UNK
     Route: 065
     Dates: start: 200812
  6. CYCLOPHOSPHAMIDE (UNKNOWN) [Suspect]
     Indication: VASCULITIS
  7. METHYLPREDNISOLONE ACETATE (WATSON LABORATORIES) [Suspect]
     Indication: RHEUMATOID ARTHRITIS
     Dosage: 1000 MG, DAILY
     Route: 042
     Dates: start: 2009
  8. METHYLPREDNISOLONE ACETATE (WATSON LABORATORIES) [Suspect]
     Indication: VASCULITIS
  9. TOCILIZUMAB [Suspect]
     Indication: RHEUMATOID ARTHRITIS
     Dosage: UNK
     Route: 065
     Dates: start: 200809
  10. SALAZOSULFAPYRIDINE [Concomitant]
     Indication: RHEUMATOID ARTHRITIS
     Dosage: UNK
     Route: 065
  11. BUCILLAMINE [Concomitant]
     Indication: RHEUMATOID ARTHRITIS
     Dosage: UNK
     Route: 065
  12. SODIUM AUROTHIOMALATE [Concomitant]
     Indication: RHEUMATOID ARTHRITIS
     Dosage: UNK
     Route: 065
     Dates: start: 200809
  13. ALPROSTADIL [Concomitant]
     Indication: RHEUMATOID ARTHRITIS
     Dosage: UNK
     Route: 065
  14. ALPROSTADIL [Concomitant]
     Indication: VASCULITIS

REACTIONS (7)
  - Sporotrichosis [Fatal]
  - Septic shock [Fatal]
  - Respiratory failure [Fatal]
  - Condition aggravated [Fatal]
  - Candida test positive [Unknown]
  - Staphylococcus test positive [Unknown]
  - Leukocytoclastic vasculitis [None]
